FAERS Safety Report 6962599-0 (Version None)
Quarter: 2010Q3

REPORT INFORMATION
  Report Type: 
  Country: None (occurrence: None)
  Receive Date: 20100823
  Receipt Date: 20100512
  Transmission Date: 20110219
  Serious: Yes (Hospitalization)
  Sender: FDA-Public Use
  Company Number: 011800

PATIENT
  Sex: Female
  Weight: 45.4 kg

DRUGS (8)
  1. CIMZIA [Suspect]
     Indication: CROHN'S DISEASE
     Dosage: (200 MG 1X/2 WEEKS SUBCUTANEOUS), (200 MG 1X/2 WEEKS SUBCUTANEOUS)
     Route: 058
     Dates: end: 20100101
  2. CIMZIA [Suspect]
     Indication: CROHN'S DISEASE
     Dosage: (200 MG 1X/2 WEEKS SUBCUTANEOUS), (200 MG 1X/2 WEEKS SUBCUTANEOUS)
     Route: 058
     Dates: start: 20100430
  3. CIMZIA [Suspect]
  4. MERCAPTOPURINE [Concomitant]
  5. PREDNISONE [Concomitant]
  6. PRENATAL VITAMINS /01549301/ [Concomitant]
  7. VITAMIN B12 NOS [Concomitant]
  8. IRON [Concomitant]

REACTIONS (3)
  - DRUG DOSE OMISSION [None]
  - OBSTRUCTION [None]
  - SMALL INTESTINAL OBSTRUCTION [None]
